FAERS Safety Report 10759004 (Version 1)
Quarter: 2015Q1

REPORT INFORMATION
  Report Type: Report from Study
  Country: US (occurrence: US)
  Receive Date: 20150203
  Receipt Date: 20150203
  Transmission Date: 20150721
  Serious: Yes (Other)
  Sender: FDA-Public Use
  Company Number: US-BAXTER-2015BAX005048

PATIENT
  Sex: Male

DRUGS (3)
  1. CEFAZOLIN INJECTION [Suspect]
     Active Substance: CEFAZOLIN
     Indication: DEVICE RELATED INFECTION
  2. CEFAZOLIN INJECTION [Suspect]
     Active Substance: CEFAZOLIN
     Indication: OSTEOMYELITIS
  3. CEFAZOLIN INJECTION [Suspect]
     Active Substance: CEFAZOLIN
     Indication: SEPSIS
     Route: 042

REACTIONS (1)
  - Treatment failure [Recovered/Resolved]
